FAERS Safety Report 15731460 (Version 1)
Quarter: 2018Q4

REPORT INFORMATION
  Report Type: Spontaneous
  Country: US (occurrence: US)
  Receive Date: 20181217
  Receipt Date: 20181217
  Transmission Date: 20190205
  Serious: Yes (Other)
  Sender: FDA-Public Use
  Company Number: US-SUNOVION-2018SUN004847

PATIENT

DRUGS (1)
  1. LATUDA [Suspect]
     Active Substance: LURASIDONE HYDROCHLORIDE
     Dosage: UNK
     Route: 048

REACTIONS (8)
  - Pain [Unknown]
  - Malaise [Unknown]
  - Feeling abnormal [Unknown]
  - Drug dependence [Unknown]
  - Suicidal ideation [Unknown]
  - Psychotic disorder [Unknown]
  - Takayasu^s arteritis [Unknown]
  - Feeling guilty [Unknown]
